FAERS Safety Report 24426210 (Version 1)
Quarter: 2024Q4

REPORT INFORMATION
  Report Type: Report from Study
  Country: US (occurrence: US)
  Receive Date: 20241011
  Receipt Date: 20241011
  Transmission Date: 20250115
  Serious: Yes (Other)
  Sender: ROCHE
  Company Number: US-ROCHE-10000053104

PATIENT
  Age: 50 Year
  Sex: Female
  Weight: 89.35 kg

DRUGS (4)
  1. OCREVUS [Suspect]
     Active Substance: OCRELIZUMAB
     Indication: Relapsing multiple sclerosis
     Route: 042
     Dates: start: 2020, end: 20240130
  2. ARIMIDEX [Concomitant]
     Active Substance: ANASTROZOLE
     Indication: Prophylaxis
     Route: 048
     Dates: start: 20240806
  3. ATORVASTATIN [Concomitant]
     Active Substance: ATORVASTATIN
     Indication: Blood cholesterol increased
     Route: 048
     Dates: start: 2004
  4. MICARDIS [Concomitant]
     Active Substance: TELMISARTAN
     Indication: Hypertension
     Route: 048
     Dates: start: 2005

REACTIONS (3)
  - Breast cancer [Recovered/Resolved]
  - Myocardial infarction [Recovered/Resolved]
  - Heart valve stenosis [Recovered/Resolved]

NARRATIVE: CASE EVENT DATE: 20210101
